FAERS Safety Report 12731207 (Version 1)
Quarter: 2016Q3

REPORT INFORMATION
  Report Type: Spontaneous
  Country: US (occurrence: US)
  Receive Date: 20160912
  Receipt Date: 20160912
  Transmission Date: 20161109
  Serious: No
  Sender: FDA-Public Use
  Company Number: US-CIPLA LTD.-2016US09826

PATIENT

DRUGS (4)
  1. BENICAR [Concomitant]
     Active Substance: OLMESARTAN MEDOXOMIL
     Indication: BLOOD PRESSURE MEASUREMENT
     Dosage: 40 MG, QD, SEVERAL YEARS
     Route: 065
  2. IBUPROFEN. [Concomitant]
     Active Substance: IBUPROFEN
     Indication: PAIN
     Dosage: UNK, PRN
     Route: 065
  3. FINASTERIDE. [Suspect]
     Active Substance: FINASTERIDE
     Indication: POLLAKIURIA
     Dosage: 5 MG, QD
     Route: 048
     Dates: start: 20160209
  4. NIFEDIPINE. [Concomitant]
     Active Substance: NIFEDIPINE
     Indication: BLOOD PRESSURE MEASUREMENT
     Dosage: 90 MG, QD, SEVERAL YEARS
     Route: 065

REACTIONS (1)
  - Musculoskeletal pain [Not Recovered/Not Resolved]

NARRATIVE: CASE EVENT DATE: 201602
